FAERS Safety Report 17720979 (Version 1)
Quarter: 2020Q2

REPORT INFORMATION
  Report Type: Other
  Country: ES (occurrence: ES)
  Receive Date: 20200428
  Receipt Date: 20200428
  Transmission Date: 20200714
  Serious: Yes (Life-Threatening)
  Sender: FDA-Public Use
  Company Number: ES-CELLTRION INC.-2020ES021897

PATIENT

DRUGS (1)
  1. INFLIXIMAB (UNKNOWN) [Suspect]
     Active Substance: INFLIXIMAB
     Indication: SPONDYLOARTHROPATHY
     Dosage: 5 MG/KG EVERY 8 WEEKS = 420 MG
     Route: 042
     Dates: start: 20190919, end: 20200217

REACTIONS (5)
  - Erythema [Recovered/Resolved]
  - Cold sweat [Recovered/Resolved]
  - Infusion related hypersensitivity reaction [Recovered/Resolved]
  - Oxygen saturation decreased [Recovered/Resolved]
  - Dyspnoea [Recovered/Resolved]

NARRATIVE: CASE EVENT DATE: 20200217
